FAERS Safety Report 16639605 (Version 1)
Quarter: 2019Q3

REPORT INFORMATION
  Report Type: Report from Study
  Country: None (occurrence: CA)
  Receive Date: 20190727
  Receipt Date: 20190727
  Transmission Date: 20191004
  Serious: Yes (Hospitalization, Other)
  Sender: FDA-Public Use
  Company Number: CA-ABBVIE-19K-028-2834653-00

PATIENT
  Age: 73 Year
  Sex: Male
  Weight: 25.42 kg

DRUGS (1)
  1. VENCLEXTA [Suspect]
     Active Substance: VENETOCLAX
     Indication: CHRONIC LYMPHOCYTIC LEUKAEMIA
     Route: 048
     Dates: start: 20190319

REACTIONS (2)
  - Product storage error [Unknown]
  - Cirrhosis alcoholic [Unknown]

NARRATIVE: CASE EVENT DATE: 201906
